FAERS Safety Report 25009698 (Version 1)
Quarter: 2025Q1

REPORT INFORMATION
  Report Type: Spontaneous
  Country: US (occurrence: US)
  Receive Date: 20250225
  Receipt Date: 20250225
  Transmission Date: 20250409
  Serious: Yes (Other)
  Sender: E5 PHARMA
  Company Number: US-e5PHARMA-2025-US-009230

PATIENT
  Age: 10 Month
  Sex: Male
  Weight: 8.16 kg

DRUGS (2)
  1. DIAZOXIDE [Suspect]
     Active Substance: DIAZOXIDE
     Indication: Hyperinsulinism
     Route: 048
     Dates: start: 20231224, end: 20231224
  2. DIURIL [Concomitant]
     Active Substance: CHLOROTHIAZIDE

REACTIONS (4)
  - Hypoglycaemia [Unknown]
  - Drug ineffective [Recovered/Resolved]
  - Irritability [Recovered/Resolved]
  - Product substitution issue [Recovered/Resolved]

NARRATIVE: CASE EVENT DATE: 20231224
